FAERS Safety Report 5815164-2 (Version None)
Quarter: 2008Q3

REPORT INFORMATION
  Report Type: 
  Country: None (occurrence: None)
  Receive Date: 20080718
  Receipt Date: 20080709
  Transmission Date: 20090109
  Serious: Yes (Hospitalization)
  Sender: FDA-Public Use
  Company Number: PHHO2008ES07923

PATIENT
  Sex: Male
  Weight: 65.8 kg

DRUGS (4)
  1. MYFORTIC [Suspect]
     Indication: RENAL TRANSPLANT
     Dosage: 1440 MG / DAY
     Route: 048
     Dates: start: 20080522, end: 20080623
  2. MYFORTIC [Suspect]
     Dosage: NO TREATMENT
     Dates: start: 20080624, end: 20080708
  3. MYFORTIC [Suspect]
     Dosage: UNKNOWN
     Route: 048
     Dates: start: 20080709
  4. TACROLIMUS COMP-TAC+ [Suspect]
     Indication: RENAL TRANSPLANT
     Dosage: 3.5 MG / DAY
     Route: 048
     Dates: start: 20080521

REACTIONS (10)
  - ANAEMIA [None]
  - ASTHENIA [None]
  - DEHYDRATION [None]
  - DIARRHOEA [None]
  - FAECES DISCOLOURED [None]
  - LEUKOPENIA [None]
  - MOTION SICKNESS [None]
  - NAUSEA [None]
  - VOMITING [None]
  - WEIGHT DECREASED [None]
